FAERS Safety Report 7683292-5 (Version None)
Quarter: 2011Q3

REPORT INFORMATION
  Report Type: 
  Country: None (occurrence: None)
  Receive Date: 20110815
  Receipt Date: 20110809
  Transmission Date: 20111222
  Serious: Yes (Life-Threatening, Hospitalization)
  Sender: FDA-Public Use
  Company Number: US-GLAXOSMITHKLINE-A0940221A

PATIENT
  Age: 61 Year
  Sex: Male

DRUGS (6)
  1. SYNTHROID [Concomitant]
  2. TAMSULOSIN HCL [Concomitant]
  3. CLONAZEPAM [Concomitant]
  4. KEPPRA [Concomitant]
  5. LAMICTAL [Suspect]
     Indication: CONVULSION
     Dosage: 200MG TWICE PER DAY
     Route: 048
     Dates: start: 20060101
  6. LANSOPRAZOLE [Concomitant]

REACTIONS (3)
  - HYPERBILIRUBINAEMIA [None]
  - CONVULSION [None]
  - JAUNDICE [None]
